FAERS Safety Report 15474794 (Version 1)
Quarter: 2018Q4

REPORT INFORMATION
  Report Type: Spontaneous
  Country: AU (occurrence: AU)
  Receive Date: 20181008
  Receipt Date: 20181008
  Transmission Date: 20190205
  Serious: Yes (Hospitalization, Other)
  Sender: FDA-Public Use
  Company Number: AU-HQ SPECIALTY-AU-2018INT000187

PATIENT
  Age: 57 Year
  Sex: Male
  Weight: 65 kg

DRUGS (9)
  1. CARBOPLATIN. [Suspect]
     Active Substance: CARBOPLATIN
     Indication: LUNG SQUAMOUS CELL CARCINOMA STAGE II
     Dosage: DAY 1 OF A 21-DAY CYCLE
  2. CARBOPLATIN. [Suspect]
     Active Substance: CARBOPLATIN
     Dosage: 20% DOSE REDUCTION FOR CYCLES 2 AND 3
  3. DOCETAXEL. [Suspect]
     Active Substance: DOCETAXEL
     Indication: LUNG SQUAMOUS CELL CARCINOMA STAGE II
     Dosage: 75 MG/M2, DAY 1 OF 21-DAY CYCLE AT 50% DOSE REDUCTION
  4. CISPLATIN. [Suspect]
     Active Substance: CISPLATIN
     Indication: LUNG SQUAMOUS CELL CARCINOMA STAGE II
     Dosage: 50 MG/M2, DAYS 1, 8, 29, AND 36
  5. GEMCITABINE [Suspect]
     Active Substance: GEMCITABINE\GEMCITABINE HYDROCHLORIDE
     Indication: LUNG SQUAMOUS CELL CARCINOMA STAGE II
     Dosage: 1000 MG/M2, DAYS 1 AND 8 OF A 21-DAY CYCLE
  6. GEMCITABINE [Suspect]
     Active Substance: GEMCITABINE\GEMCITABINE HYDROCHLORIDE
     Dosage: 20% DOSE REDUCTION FOR CYCLES 2 AND 3
  7. ETOPOSIDE. [Suspect]
     Active Substance: ETOPOSIDE
     Dosage: 25% DOSE REDUCTION ON DAYS 29 TO 33
  8. ETOPOSIDE. [Suspect]
     Active Substance: ETOPOSIDE
     Indication: LUNG SQUAMOUS CELL CARCINOMA STAGE II
     Dosage: 50 MG/M2, DAYS 1 TO 5 AND 29 TO 33
  9. CISPLATIN. [Suspect]
     Active Substance: CISPLATIN
     Dosage: 25% DOSE REDUCTION ON DAYS 29 TO 33

REACTIONS (6)
  - Febrile neutropenia [Unknown]
  - Bone marrow failure [Unknown]
  - Epistaxis [Unknown]
  - Anaemia [Unknown]
  - Diarrhoea [Unknown]
  - Colitis [Recovered/Resolved]
